FAERS Safety Report 10678155 (Version 1)
Quarter: 2014Q4

REPORT INFORMATION
  Report Type: Spontaneous
  Country: GB (occurrence: None)
  Receive Date: 20141223
  Receipt Date: 20141223
  Transmission Date: 20150529
  Serious: Yes (Hospitalization)
  Sender: FDA-Public Use
  Company Number: 2014-003648

PATIENT
  Age: 73 Year
  Sex: Female

DRUGS (5)
  1. ACTONEL [Suspect]
     Active Substance: RISEDRONATE SODIUM
     Indication: PROPHYLAXIS
     Route: 048
     Dates: start: 2009, end: 20141208
  2. CODEINE [Concomitant]
     Active Substance: CODEINE
  3. PRAVASTATIN(PRAVASTATIN) [Concomitant]
  4. PREDNISOLONE. [Concomitant]
     Active Substance: PREDNISOLONE
  5. ZOPLICLONE [Concomitant]

REACTIONS (3)
  - Pain [None]
  - Atypical femur fracture [None]
  - Fall [None]

NARRATIVE: CASE EVENT DATE: 20141206
